FAERS Safety Report 4466110-8 (Version None)
Quarter: 2004Q3

REPORT INFORMATION
  Report Type: 
  Country: None (occurrence: None)
  Receive Date: 20040930
  Receipt Date: 20040920
  Transmission Date: 20050211
  Serious: Yes (Hospitalization)
  Sender: FDA-Public Use
  Company Number: 2004234782DE

PATIENT
  Age: 60 Year
  Sex: Male

DRUGS (2)
  1. BEXTRA [Suspect]
     Dosage: SINGLE, ORAL
     Route: 048
  2. NOVONORM (REPAGLINIDE) [Concomitant]

REACTIONS (1)
  - JAUNDICE CHOLESTATIC [None]
